FAERS Safety Report 6184029-1 (Version None)
Quarter: 2009Q2

REPORT INFORMATION
  Report Type: 
  Country: None (occurrence: None)
  Receive Date: 20090508
  Receipt Date: 20090506
  Transmission Date: 20091009
  Serious: No
  Sender: FDA-Public Use
  Company Number: US-B.I. PHARMACEUTICALS,INC./RIDGEFIELD-2009-BP-05645BP

PATIENT
  Sex: Female

DRUGS (6)
  1. CATAPRES-TTS-1 [Suspect]
     Indication: HOT FLUSH
     Dosage: .1MG
     Route: 061
     Dates: start: 20090401, end: 20090401
  2. CALCIUM [Concomitant]
     Indication: PROPHYLAXIS
  3. VITAMINS [Concomitant]
     Indication: PROPHYLAXIS
  4. WELLBUTRIN [Concomitant]
     Indication: ANXIETY
  5. ALPRAZOLAM [Concomitant]
     Indication: ANXIETY
  6. CYMBALTA [Concomitant]
     Indication: ANXIETY

REACTIONS (1)
  - DRUG EFFECT DECREASED [None]
